FAERS Safety Report 9032206 (Version 1)
Quarter: 2013Q1

REPORT INFORMATION
  Report Type: Spontaneous
  Country: US (occurrence: US)
  Receive Date: 20130122
  Receipt Date: 20130122
  Transmission Date: 20140127
  Serious: No
  Sender: FDA-Public Use
  Company Number: US-009507513-1212USA005329

PATIENT
  Age: 62 Year
  Sex: Male
  Weight: 63.5 kg

DRUGS (3)
  1. AZASITE [Suspect]
     Indication: EYELID INFECTION
     Dosage: 1 GTT, BID
     Route: 047
     Dates: start: 20080207, end: 20080210
  2. AZASITE [Suspect]
     Dosage: 1 GTT, QD
     Route: 047
     Dates: start: 20080211
  3. PRED FORTE [Concomitant]

REACTIONS (1)
  - Eye pain [Not Recovered/Not Resolved]
